FAERS Safety Report 24636707 (Version 1)
Quarter: 2024Q4

REPORT INFORMATION
  Report Type: Spontaneous
  Country: FR (occurrence: FR)
  Receive Date: 20241119
  Receipt Date: 20241119
  Transmission Date: 20250115
  Serious: Yes (Life-Threatening, Hospitalization)
  Sender: ASCEND THERAPEUTICS US, LLC
  Company Number: FR-Ascend Therapeutics US, LLC-2165272

PATIENT
  Age: 49 Year
  Sex: Female

DRUGS (2)
  1. ESTROGEL [Suspect]
     Active Substance: ESTRADIOL
     Indication: Gender reassignment therapy
     Dates: start: 2014, end: 20241021
  2. ESTRADIOL [Suspect]
     Active Substance: ESTRADIOL
     Dates: start: 2014, end: 20241021

REACTIONS (3)
  - Cor pulmonale acute [Recovering/Resolving]
  - Deep vein thrombosis [Recovering/Resolving]
  - Pulmonary embolism [Recovering/Resolving]

NARRATIVE: CASE EVENT DATE: 20241021
